FAERS Safety Report 20840898 (Version 2)
Quarter: 2022Q2

REPORT INFORMATION
  Report Type: Spontaneous
  Country: HU (occurrence: HU)
  Receive Date: 20220517
  Receipt Date: 20220524
  Transmission Date: 20220721
  Serious: Yes (Other)
  Sender: FDA-Public Use
  Company Number: HU-NOVARTISPH-NVSC2022HU111721

PATIENT

DRUGS (9)
  1. RIBOCICLIB [Suspect]
     Active Substance: RIBOCICLIB
     Indication: Invasive ductal breast carcinoma
     Dosage: 3 DOSAGE FORM, QD (3 TABLETS)
     Route: 065
     Dates: start: 20210128
  2. RIBOCICLIB [Suspect]
     Active Substance: RIBOCICLIB
     Dosage: 2 DOSAGE FORM, QD (2 TABLETS)
     Route: 065
     Dates: start: 20210506
  3. RIBOCICLIB [Suspect]
     Active Substance: RIBOCICLIB
     Dosage: 1 DOSAGE FORM, QD (1 TABLETS)
     Route: 065
     Dates: start: 20210610, end: 20220127
  4. LETROZOLE [Suspect]
     Active Substance: LETROZOLE
     Indication: Invasive ductal breast carcinoma
     Dosage: 1 DOSAGE FORM, QD
     Route: 065
     Dates: start: 20180906
  5. FULVESTRANT [Suspect]
     Active Substance: FULVESTRANT
     Indication: Invasive ductal breast carcinoma
     Dosage: 2 AMPOULES
     Route: 065
     Dates: start: 20210128
  6. IBANDRONIC ACID [Suspect]
     Active Substance: IBANDRONIC ACID
     Indication: Invasive ductal breast carcinoma
     Dosage: 1 AMPOULE
     Route: 065
     Dates: start: 20210128
  7. TRASTUZUMAB [Suspect]
     Active Substance: TRASTUZUMAB
     Indication: Metastases to skin
     Dosage: UNK
     Route: 065
     Dates: start: 20220224
  8. DOCETAXEL [Concomitant]
     Active Substance: DOCETAXEL
     Indication: Metastases to skin
     Dosage: UNK
     Route: 065
     Dates: start: 20220224
  9. ENOXAPARIN SODIUM [Concomitant]
     Active Substance: ENOXAPARIN SODIUM
     Indication: Product used for unknown indication
     Dosage: UNK, QD (2X1 AMPULE, 0.6 ML)
     Route: 058
     Dates: start: 20220429

REACTIONS (24)
  - Metastases to skin [Unknown]
  - Granulocyte count decreased [Recovered/Resolved]
  - Granulocyte count decreased [Recovered/Resolved]
  - Breast cancer recurrent [Unknown]
  - Electrocardiogram QT prolonged [Recovered/Resolved]
  - Electrocardiogram QT prolonged [Unknown]
  - Neutropenia [Recovered/Resolved]
  - Malignant neoplasm progression [Unknown]
  - Invasive ductal breast carcinoma [Unknown]
  - Ovarian cyst [Unknown]
  - Gait disturbance [Unknown]
  - Granulocyte count decreased [Recovered/Resolved]
  - Axillary vein thrombosis [Unknown]
  - Granulocyte count decreased [Recovered/Resolved]
  - Hepatic cyst [Unknown]
  - Scar [Unknown]
  - Bundle branch block left [Unknown]
  - Pleural effusion [Unknown]
  - Lymphadenopathy [Unknown]
  - Spondylolysis [Unknown]
  - Dizziness [Unknown]
  - Asthenia [Unknown]
  - Alopecia [Unknown]
  - White blood cell count decreased [Recovered/Resolved]

NARRATIVE: CASE EVENT DATE: 20170117
